FAERS Safety Report 4862853-2 (Version None)
Quarter: 2005Q4

REPORT INFORMATION
  Report Type: 
  Country: None (occurrence: None)
  Receive Date: 20051221
  Receipt Date: 20051216
  Transmission Date: 20060501
  Serious: Yes (Death)
  Sender: FDA-Public Use
  Company Number: 2005UW18937

PATIENT
  Age: 18 Year
  Sex: Female

DRUGS (1)
  1. DIPRIVAN [Suspect]
     Indication: INTRACRANIAL PRESSURE INCREASED
     Dosage: AVERAGE RATE OF 3.4 MG/KG/HR AND MAXIMUM RATE OF 5.4 MG/KG/HR FOR ONE HOUR
     Route: 042

REACTIONS (6)
  - ALANINE AMINOTRANSFERASE INCREASED [None]
  - ARRHYTHMIA [None]
  - ASPARTATE AMINOTRANSFERASE INCREASED [None]
  - CIRCULATORY COLLAPSE [None]
  - PROPOFOL INFUSION SYNDROME [None]
  - RHABDOMYOLYSIS [None]
